FAERS Safety Report 14334559 (Version 1)
Quarter: 2017Q4

REPORT INFORMATION
  Report Type: Spontaneous
  Country: TW (occurrence: TW)
  Receive Date: 20171228
  Receipt Date: 20171228
  Transmission Date: 20180321
  Serious: Yes (Other)
  Sender: FDA-Public Use
  Company Number: TW-BAUSCH-BL-2017-035500

PATIENT
  Age: 35 Year
  Sex: Male

DRUGS (4)
  1. PREDNISOLONE. [Suspect]
     Active Substance: PREDNISOLONE
     Indication: UVEITIS
     Route: 061
  2. TIMOLOL 0.5 PERCENT/DORZOLAMIDE 2 PERCENT [Concomitant]
     Indication: UVEITIS
  3. ACETAZOLAMIDE. [Concomitant]
     Active Substance: ACETAZOLAMIDE
     Indication: UVEITIS
  4. BRIMONIDINE 0.15 PERCENT [Concomitant]
     Indication: UVEITIS

REACTIONS (2)
  - Keratitis [Recovered/Resolved]
  - Glaucoma [Recovered/Resolved]
